FAERS Safety Report 4507687-3 (Version None)
Quarter: 2004Q4

REPORT INFORMATION
  Report Type: 
  Country: None (occurrence: None)
  Receive Date: 20041122
  Receipt Date: 20041025
  Transmission Date: 20050328
  Serious: Yes (Other)
  Sender: FDA-Public Use
  Company Number: 003036

PATIENT
  Age: 53 Year
  Sex: Male
  Weight: 104.3 kg

DRUGS (1)
  1. FLUOXETINE [Suspect]
     Indication: PANIC ATTACK
     Dosage: 60.00 MG, QD, ORAL
     Route: 048
     Dates: start: 20040601, end: 20040901

REACTIONS (8)
  - AGORAPHOBIA [None]
  - DELUSIONAL DISORDER, PERSECUTORY TYPE [None]
  - DEPRESSION [None]
  - MOOD SWINGS [None]
  - PARANOIA [None]
  - RASH [None]
  - SUICIDAL IDEATION [None]
  - URTICARIA [None]
